FAERS Safety Report 11100927 (Version 3)
Quarter: 2015Q3

REPORT INFORMATION
  Report Type: Spontaneous
  Country: US (occurrence: US)
  Receive Date: 20150508
  Receipt Date: 20150807
  Transmission Date: 20151125
  Serious: No
  Sender: FDA-Public Use
  Company Number: US-GLAXOSMITHKLINE-US2015061542

PATIENT
  Sex: Female

DRUGS (1)
  1. FLONASE [Suspect]
     Active Substance: FLUTICASONE PROPIONATE
     Indication: HYPERSENSITIVITY
     Dosage: UNK

REACTIONS (7)
  - Oropharyngeal pain [Unknown]
  - Malaise [Unknown]
  - Hypersensitivity [Unknown]
  - Headache [Unknown]
  - Nasal congestion [Unknown]
  - Pharyngeal disorder [Unknown]
  - Rhinorrhoea [Unknown]
